FAERS Safety Report 6679986-0 (Version None)
Quarter: 2010Q2

REPORT INFORMATION
  Report Type: 
  Country: None (occurrence: None)
  Receive Date: 20100413
  Receipt Date: 20100402
  Transmission Date: 20101027
  Serious: Yes (Death)
  Sender: FDA-Public Use
  Company Number: AT-BAXTER-2010BH008798

PATIENT

DRUGS (2)
  1. HEPARIN [Suspect]
     Indication: ANTICOAGULANT THERAPY
     Route: 042
  2. EPOPROSTENOL [Suspect]
     Indication: ANTICOAGULANT THERAPY
     Route: 042

REACTIONS (2)
  - MELAENA [None]
  - MULTI-ORGAN FAILURE [None]
